FAERS Safety Report 5490236-3 (Version None)
Quarter: 2007Q4

REPORT INFORMATION
  Report Type: 
  Country: None (occurrence: None)
  Receive Date: 20071017
  Receipt Date: 20071001
  Transmission Date: 20080405
  Serious: Yes (Other)
  Sender: FDA-Public Use
  Company Number: 002#8#2007-00241

PATIENT
  Age: 41 Year
  Sex: Female

DRUGS (6)
  1. ALPRAZOLAM [Suspect]
     Dosage: ORAL
     Route: 048
  2. ZIPRASIDONE HCL [Suspect]
     Dosage: ORAL
     Route: 048
  3. LITHIUM [Concomitant]
  4. LAMOTRIGINE [Concomitant]
  5. OXCARBAZEPINE [Concomitant]
  6. TEMAZEPAM [Concomitant]

REACTIONS (5)
  - ADVERSE DRUG REACTION [None]
  - BLEPHAROSPASM [None]
  - DYSTONIA [None]
  - EYE DISORDER [None]
  - NO THERAPEUTIC RESPONSE [None]
